FAERS Safety Report 18237766 (Version 2)
Quarter: 2020Q3

REPORT INFORMATION
  Report Type: Spontaneous
  Country: US (occurrence: US)
  Receive Date: 20200907
  Receipt Date: 20200923
  Transmission Date: 20201103
  Serious: Yes (Other)
  Sender: FDA-Public Use
  Company Number: US-PFIZER INC-2019153353

PATIENT
  Age: 44 Year
  Sex: Female

DRUGS (3)
  1. DILANTIN [Suspect]
     Active Substance: PHENYTOIN
     Indication: SEIZURE
     Dosage: UNK
     Dates: start: 2000
  2. DILANTIN [Suspect]
     Active Substance: PHENYTOIN
     Indication: BRAIN OPERATION
     Dosage: 300 MG, DAILY (100MG STRENGTH, LOWERED DOSE)
     Dates: start: 2001
  3. DILANTIN [Suspect]
     Active Substance: PHENYTOIN
     Indication: ARTERIOVENOUS MALFORMATION
     Dosage: 400 MG, DAILY (2 IN AM, 1 AT NOON, 1 AT BEDTIME (HS)/ DOSE OF FOUR 100MG PILLS A DAY)
     Route: 048

REACTIONS (1)
  - Generalised tonic-clonic seizure [Unknown]

NARRATIVE: CASE EVENT DATE: 2001
